FAERS Safety Report 18024790 (Version 1)
Quarter: 2020Q3

REPORT INFORMATION
  Report Type: Spontaneous
  Country: US (occurrence: US)
  Receive Date: 20200715
  Receipt Date: 20200715
  Transmission Date: 20201103
  Serious: Yes (Other)
  Sender: FDA-Public Use
  Company Number: None

PATIENT
  Age: 77 Year
  Sex: Male
  Weight: 68.95 kg

DRUGS (13)
  1. TOCILIZUMAB 100 ML IV ONCE [Concomitant]
     Dates: start: 20200714, end: 20200714
  2. ASCORBIC ACID 500MG QD [Concomitant]
     Dates: start: 20200714
  3. ATENOLOL 25MG QD [Concomitant]
     Dates: start: 20200714
  4. FAMOTIDINE 20 MG QD [Concomitant]
     Dates: start: 20200714
  5. ATORVASTATIN 20 QPM [Concomitant]
     Dates: start: 20200714
  6. LEVOTHYROXINE 100MCG QS [Concomitant]
     Dates: start: 20200714
  7. ONDANSTERON 4MG Q8 PRN [Concomitant]
     Dates: start: 20200714
  8. DEXAMETHASONE 6MG IV Q 24 [Concomitant]
     Dates: start: 20200714
  9. REMDESIVIR. [Suspect]
     Active Substance: REMDESIVIR
     Indication: COVID-19
     Route: 041
     Dates: start: 20200714, end: 20200715
  10. ACETAMINOPHEN 650 PO Q6H PRN [Concomitant]
     Dates: start: 20200713
  11. ZINC SULFATE 220 MG QD [Concomitant]
     Dates: start: 20200714
  12. BICALUTAMIDE 50MG QD [Concomitant]
     Dates: start: 20200714
  13. HEPARIN 5000 SC Q8 [Concomitant]
     Dates: start: 20200714

REACTIONS (2)
  - Alanine aminotransferase increased [None]
  - Aspartate aminotransferase increased [None]

NARRATIVE: CASE EVENT DATE: 20200715
